FAERS Safety Report 8116050-8 (Version None)
Quarter: 2012Q1

REPORT INFORMATION
  Report Type: 
  Country: None (occurrence: None)
  Receive Date: 20120119
  Receipt Date: 20120104
  Transmission Date: 20120608
  Serious: Yes (Disabling, Other)
  Sender: FDA-Public Use
  Company Number: OMX-2011-00053

PATIENT
  Sex: Female

DRUGS (2)
  1. APPLICATOR [Concomitant]
  2. EVICEL [Suspect]
     Indication: TISSUE SEALING
     Dosage: ONCE, EPILESIONAL
     Dates: start: 20070214, end: 20070214

REACTIONS (5)
  - ANORECTAL DISORDER [None]
  - GRAFT COMPLICATION [None]
  - SURGICAL PROCEDURE REPEATED [None]
  - PAIN [None]
  - FAECAL INCONTINENCE [None]
